FAERS Safety Report 7675742-5 (Version None)
Quarter: 2011Q3

REPORT INFORMATION
  Report Type: 
  Country: None (occurrence: None)
  Receive Date: 20110810
  Receipt Date: 20110629
  Transmission Date: 20111222
  Serious: No
  Sender: FDA-Public Use
  Company Number: US-TYCO HEALTHCARE/MALLINCKRODT-T201101318

PATIENT
  Sex: Female

DRUGS (2)
  1. EYE DROPS [Suspect]
  2. PENNSAID [Suspect]

REACTIONS (2)
  - EYE IRRITATION [None]
  - WRONG DRUG ADMINISTERED [None]
